FAERS Safety Report 26070493 (Version 1)
Quarter: 2025Q4

REPORT INFORMATION
  Report Type: Spontaneous
  Country: GB (occurrence: GB)
  Receive Date: 20251120
  Receipt Date: 20251120
  Transmission Date: 20260117
  Serious: Yes (Other)
  Sender: TEVA
  Company Number: None

PATIENT
  Age: 82 Year
  Sex: Male
  Weight: 75 kg

DRUGS (7)
  1. BISOPROLOL [Suspect]
     Active Substance: BISOPROLOL
     Indication: Cardiac pacemaker insertion
     Dosage: BISOPROLOL FUMARATE
     Route: 048
     Dates: start: 20241011, end: 20250830
  2. ISOSORBIDE [Concomitant]
     Active Substance: ISOSORBIDE
     Indication: Angina pectoris
     Dates: start: 20070911
  3. EDOXABAN [Concomitant]
     Active Substance: EDOXABAN
     Indication: Cardiac pacemaker insertion
     Dates: start: 20241012
  4. METFORMIN [Concomitant]
     Active Substance: METFORMIN HYDROCHLORIDE
     Indication: Product used for unknown indication
     Dates: start: 20170629
  5. LATANOPROST [Concomitant]
     Active Substance: LATANOPROST
     Indication: Glaucoma
     Dosage: LATANAPROST
     Dates: start: 20180730
  6. AMLODIPINE [Concomitant]
     Active Substance: AMLODIPINE BESYLATE
     Indication: Angina pectoris
     Dates: start: 20070911
  7. ROSUVASTATIN [Concomitant]
     Active Substance: ROSUVASTATIN
     Indication: Blood cholesterol increased
     Dosage: TEVA UK ROSUVASTATIN
     Dates: start: 20070911

REACTIONS (6)
  - Atrial flutter [Unknown]
  - Memory impairment [Recovering/Resolving]
  - Anal incontinence [Unknown]
  - Blood triglycerides increased [Unknown]
  - Hallucination [Recovering/Resolving]
  - Depression [Recovering/Resolving]

NARRATIVE: CASE EVENT DATE: 20241020
